FAERS Safety Report 10659742 (Version 2)
Quarter: 2014Q4

REPORT INFORMATION
  Report Type: Spontaneous
  Country: JP (occurrence: JP)
  Receive Date: 20141217
  Receipt Date: 20141230
  Transmission Date: 20150529
  Serious: Yes (Other)
  Sender: FDA-Public Use
  Company Number: JP-PFIZER INC-2014343949

PATIENT

DRUGS (1)
  1. ZYVOX [Suspect]
     Active Substance: LINEZOLID
     Dosage: 1200 MG, DAILY
     Route: 041
     Dates: start: 20141107, end: 20141202

REACTIONS (2)
  - Interstitial lung disease [Not Recovered/Not Resolved]
  - Platelet count decreased [Not Recovered/Not Resolved]

NARRATIVE: CASE EVENT DATE: 20141205
